FAERS Safety Report 19553933 (Version 1)
Quarter: 2021Q3

REPORT INFORMATION
  Report Type: Other
  Country: US (occurrence: US)
  Receive Date: 20210714
  Receipt Date: 20210714
  Transmission Date: 20211014
  Serious: Yes (Life-Threatening, Hospitalization, Other)
  Sender: FDA-Public Use
  Company Number: US-BIOLOGICAL E. LTD-2113815

PATIENT
  Age: 41 Year
  Sex: Female

DRUGS (7)
  1. ALBUTEROL. [Suspect]
     Active Substance: ALBUTEROL
     Route: 065
  2. KETAMINE HYDROCHLORIDE. [Suspect]
     Active Substance: KETAMINE HYDROCHLORIDE
     Route: 065
  3. EPINEPHRINE. [Suspect]
     Active Substance: EPINEPHRINE
     Route: 065
  4. MAGNESIUM CHLORIDE. [Suspect]
     Active Substance: MAGNESIUM CHLORIDE
     Route: 042
  5. METHYLPREDNISOLONE. [Suspect]
     Active Substance: METHYLPREDNISOLONE
     Route: 042
  6. HEPARIN SODIUM INJECTION USP, 5,000 UNITS PER 0.5 ML (10,000 UNITS PER [Suspect]
     Active Substance: HEPARIN SODIUM
     Indication: COAGULOPATHY
     Route: 065
  7. CISATRACURIUM. [Suspect]
     Active Substance: CISATRACURIUM
     Route: 065

REACTIONS (4)
  - Vaginal haemorrhage [Unknown]
  - Peripheral ischaemia [Unknown]
  - Status epilepticus [Unknown]
  - Exposure during pregnancy [Unknown]
